FAERS Safety Report 15121706 (Version 1)
Quarter: 2018Q3

REPORT INFORMATION
  Report Type: Report from Study
  Country: US (occurrence: US)
  Receive Date: 20180709
  Receipt Date: 20180709
  Transmission Date: 20181010
  Serious: Yes (Hospitalization)
  Sender: FDA-Public Use
  Company Number: US-JNJFOC-20180708592

PATIENT
  Age: 90 Year
  Sex: Female

DRUGS (8)
  1. GLUCOSAMINE [Concomitant]
     Active Substance: GLUCOSAMINE
  2. RANITIDINE. [Concomitant]
     Active Substance: RANITIDINE
  3. LOSARTAN. [Concomitant]
     Active Substance: LOSARTAN
  4. IMBRUVICA [Suspect]
     Active Substance: IBRUTINIB
     Indication: MANTLE CELL LYMPHOMA
     Route: 048
     Dates: start: 20180404
  5. CENTRUM [Concomitant]
     Active Substance: VITAMINS
  6. BUMETANIDE. [Concomitant]
     Active Substance: BUMETANIDE
  7. BREO ELLIPTA [Concomitant]
     Active Substance: FLUTICASONE FUROATE\VILANTEROL TRIFENATATE
  8. ASPIRIN. [Concomitant]
     Active Substance: ASPIRIN

REACTIONS (3)
  - Incorrect dose administered [Unknown]
  - Off label use [Unknown]
  - Blood count abnormal [Unknown]

NARRATIVE: CASE EVENT DATE: 20180404
